FAERS Safety Report 19065641 (Version 2)
Quarter: 2022Q1

REPORT INFORMATION
  Report Type: Spontaneous
  Country: CZ (occurrence: CZ)
  Receive Date: 20210327
  Receipt Date: 20220227
  Transmission Date: 20220423
  Serious: Yes (Life-Threatening, Other)
  Sender: FDA-Public Use
  Company Number: None

PATIENT
  Age: 39 Year
  Sex: Male

DRUGS (6)
  1. QUETIAPINE FUMARATE [Interacting]
     Active Substance: QUETIAPINE FUMARATE
     Indication: Schizophrenia
  2. AMISULPRIDE [Interacting]
     Active Substance: AMISULPRIDE
     Indication: Product used for unknown indication
     Dosage: UNK
  3. CARBAMAZEPINE [Interacting]
     Active Substance: CARBAMAZEPINE
     Indication: Epilepsy
     Dosage: UNK
     Route: 048
  4. LAMOTRIGINE [Interacting]
     Active Substance: LAMOTRIGINE
     Indication: Epilepsy
     Dosage: UNK
  5. VENLAFAXINE [Interacting]
     Active Substance: VENLAFAXINE HYDROCHLORIDE
     Indication: Epilepsy
     Dosage: UNK
     Route: 048
  6. GABAPENTIN [Concomitant]
     Active Substance: GABAPENTIN
     Indication: Epilepsy

REACTIONS (7)
  - Drug ineffective [Unknown]
  - Suicide attempt [Unknown]
  - Depression [Unknown]
  - Drug level decreased [Recovered/Resolved]
  - Delusion [Unknown]
  - Drug interaction [Unknown]
  - Antipsychotic drug level below therapeutic [Recovered/Resolved]
